FAERS Safety Report 13225616 (Version 4)
Quarter: 2017Q1

REPORT INFORMATION
  Report Type: Spontaneous
  Country: CA (occurrence: CA)
  Receive Date: 20170213
  Receipt Date: 20170330
  Transmission Date: 20170428
  Serious: Yes (Other)
  Sender: FDA-Public Use
  Company Number: CA-TEVA-738128ACC

PATIENT
  Age: 58 Year
  Sex: Male
  Weight: 97.61 kg

DRUGS (3)
  1. ACT METFORMIN [Suspect]
     Active Substance: METFORMIN HYDROCHLORIDE
     Indication: DIABETES MELLITUS
     Dosage: STRENGTH: 500MG
     Route: 048
     Dates: start: 20161222, end: 20161224
  2. GLICLAZIDE [Concomitant]
     Active Substance: GLICLAZIDE
     Dosage: 30 MILLIGRAM DAILY;
  3. COVERSYL [Concomitant]
     Active Substance: PERINDOPRIL
     Dosage: 4 MILLIGRAM DAILY;

REACTIONS (4)
  - Dizziness [Recovered/Resolved]
  - Cardiac flutter [Unknown]
  - Diarrhoea [Recovered/Resolved]
  - Product substitution issue [Unknown]

NARRATIVE: CASE EVENT DATE: 201612
